FAERS Safety Report 16315693 (Version 2)
Quarter: 2019Q3

REPORT INFORMATION
  Report Type: Spontaneous
  Country: NL (occurrence: NL)
  Receive Date: 20190515
  Receipt Date: 20190816
  Transmission Date: 20191004
  Serious: Yes (Hospitalization)
  Sender: FDA-Public Use
  Company Number: PHHY2019NL087031

PATIENT
  Age: 26 Year
  Sex: Female

DRUGS (9)
  1. CLEMASTINE [Suspect]
     Active Substance: CLEMASTINE
     Indication: ANGIOEDEMA
     Dosage: 2 MG, UNK
     Route: 042
  2. EPINEPHRINE HYDROCHLORIDE. [Suspect]
     Active Substance: EPINEPHRINE HYDROCHLORIDE
     Indication: HEREDITARY ANGIOEDEMA
  3. CETIRIZINE HYDROCHLORIDE. [Suspect]
     Active Substance: CETIRIZINE HYDROCHLORIDE
     Indication: ANGIOEDEMA
     Dosage: 20 MG, BID, MAINTENANCE
     Route: 065
  4. RANITIDINE HYDROCHLORIDE. [Suspect]
     Active Substance: RANITIDINE HYDROCHLORIDE
     Indication: ANGIOEDEMA
     Dosage: 300 MG, BID, MAINTENANCE THERAPY
     Route: 065
  5. CLEMASTINE [Suspect]
     Active Substance: CLEMASTINE
     Indication: HEREDITARY ANGIOEDEMA
  6. DEXAMETHASONE. [Suspect]
     Active Substance: DEXAMETHASONE
     Indication: ANGIOEDEMA
     Dosage: 4 MG, UNK, DURING TWO SUCCESSIVE ACUTE ATTACKS OF ANGIOEDEMA
     Route: 065
  7. TRANEXAMIC ACID. [Concomitant]
     Active Substance: TRANEXAMIC ACID
     Indication: ANGIOEDEMA
     Dosage: 1000 MG, TID
     Route: 065
  8. DANAZOL. [Suspect]
     Active Substance: DANAZOL
     Indication: ANGIOEDEMA
     Dosage: 200 MG, QD
     Route: 065
  9. EPINEPHRINE HYDROCHLORIDE. [Suspect]
     Active Substance: EPINEPHRINE HYDROCHLORIDE
     Indication: ANGIOEDEMA
     Dosage: 0.5 MG, UNK
     Route: 065

REACTIONS (2)
  - Myopathy [Recovered/Resolved]
  - Drug ineffective [Unknown]
